FAERS Safety Report 4990417-9 (Version None)
Quarter: 2006Q2

REPORT INFORMATION
  Report Type: 
  Country: None (occurrence: None)
  Receive Date: 20060501
  Receipt Date: 20060501
  Transmission Date: 20061013
  Serious: Yes (Hospitalization)
  Sender: FDA-Public Use
  Company Number: None

PATIENT
  Sex: Male
  Weight: 57.8 kg

DRUGS (2)
  1. VELCADE [Suspect]
     Indication: LIP AND/OR ORAL CAVITY CANCER
     Dosage: 1.23MG    D.1,4,8,11  Q3WK   IV PUSH
     Route: 042
     Dates: start: 20060213, end: 20060310
  2. CISPLATIN [Suspect]
     Indication: LIP AND/OR ORAL CAVITY CANCER
     Dosage: 53.1MG   WEEKLY   IV
     Route: 042
     Dates: start: 20060213, end: 20060307

REACTIONS (1)
  - HEADACHE [None]
